FAERS Safety Report 23593278 (Version 1)
Quarter: 2024Q1

REPORT INFORMATION
  Report Type: Spontaneous
  Country: IT (occurrence: IT)
  Receive Date: 20240304
  Receipt Date: 20240304
  Transmission Date: 20240410
  Serious: Yes (Death, Life-Threatening, Other)
  Sender: FDA-Public Use
  Company Number: IT-ADMA BIOLOGICS INC.-IT-2024ADM000056

PATIENT
  Age: 68 Year
  Sex: Male

DRUGS (3)
  1. HUMAN IMMUNOGLOBULIN G [Suspect]
     Active Substance: HUMAN IMMUNOGLOBULIN G
     Indication: Pemphigus
     Dosage: UNK
     Route: 042
  2. RITUXIMAB [Suspect]
     Active Substance: RITUXIMAB
     Indication: Pemphigus
     Dosage: UNK
     Route: 065
  3. CORTICOSTEROID NOS [Suspect]
     Active Substance: CORTICOSTEROID NOS
     Indication: Pemphigus
     Dosage: UNK
     Route: 042

REACTIONS (10)
  - Multiple organ dysfunction syndrome [Fatal]
  - Septic shock [Fatal]
  - Pneumonia bacterial [Fatal]
  - Upper airway obstruction [Recovered/Resolved]
  - Kaposi^s sarcoma [Unknown]
  - Pemphigus [Unknown]
  - Condition aggravated [Unknown]
  - Immunosuppression [Unknown]
  - Pancytopenia [Unknown]
  - Off label use [Unknown]
